FAERS Safety Report 17840453 (Version 1)
Quarter: 2020Q2

REPORT INFORMATION
  Report Type: Spontaneous
  Country: DE (occurrence: DE)
  Receive Date: 20200529
  Receipt Date: 20200529
  Transmission Date: 20200714
  Serious: Yes (Other)
  Sender: FDA-Public Use
  Company Number: DE-ACCORD-183358

PATIENT
  Age: 55 Year
  Sex: Female

DRUGS (3)
  1. TRETINOIN. [Suspect]
     Active Substance: TRETINOIN
     Indication: ACUTE MYELOID LEUKAEMIA
     Route: 048
  2. AZACITIDINE. [Suspect]
     Active Substance: AZACITIDINE
     Indication: ACUTE MYELOID LEUKAEMIA
     Dosage: LOW-DOSE, D1-7 OF 28
     Route: 058
  3. PIOGLITAZONE/PIOGLITAZONE HYDROCHLORIDE [Suspect]
     Active Substance: PIOGLITAZONE HYDROCHLORIDE
     Indication: ACUTE MYELOID LEUKAEMIA
     Route: 048

REACTIONS (4)
  - Staphylococcal infection [Recovered/Resolved]
  - Chronic graft versus host disease [Unknown]
  - Off label use [Unknown]
  - Urosepsis [Recovered/Resolved]
